FAERS Safety Report 22774850 (Version 3)
Quarter: 2024Q1

REPORT INFORMATION
  Report Type: Spontaneous
  Country: US (occurrence: None)
  Receive Date: 20230802
  Receipt Date: 20240118
  Transmission Date: 20240410
  Serious: Yes (Other)
  Sender: FDA-Public Use
  Company Number: US-ROCHE-3395940

PATIENT
  Age: 60 Year
  Sex: Male
  Weight: 107.14 kg

DRUGS (14)
  1. VABYSMO [Suspect]
     Active Substance: FARICIMAB\FARICIMAB-SVOA
     Indication: Diabetic retinal oedema
     Route: 050
     Dates: start: 20230601, end: 20230706
  2. ASPIRIN [Concomitant]
     Active Substance: ASPIRIN
     Route: 048
     Dates: start: 2015
  3. BUSPAR [Concomitant]
     Active Substance: BUSPIRONE HYDROCHLORIDE
     Indication: Anxiety
     Dosage: TAKES ONE TABLET AT NIGHT AND ONE DURING THE DAY
     Route: 048
     Dates: start: 2017
  4. BUPROPION HYDROCHLORIDE XL [Concomitant]
     Active Substance: BUPROPION HYDROCHLORIDE
     Indication: Depression
     Route: 048
     Dates: start: 2017
  5. DULOXETINE [Concomitant]
     Active Substance: DULOXETINE
     Indication: Fibromyalgia
     Route: 048
     Dates: start: 2018
  6. HUMULIN N [Concomitant]
     Active Substance: INSULIN HUMAN
     Indication: Diabetes mellitus
     Dosage: TAKES 40 UNITS AT BREAKFAST AND BEDTIME
     Route: 058
     Dates: start: 2003
  7. PRAVASTATIN [Concomitant]
     Active Substance: PRAVASTATIN
     Indication: Diabetes mellitus
     Route: 048
     Dates: start: 20230301
  8. TAMSULOSIN [Concomitant]
     Active Substance: TAMSULOSIN
     Dosage: TAKES 30 MINS AFTER MEAL
     Route: 048
     Dates: start: 2016
  9. CALCIUM CITRATE [Concomitant]
     Active Substance: CALCIUM CITRATE
     Route: 048
     Dates: start: 2023
  10. CYCLOPENTOLATE [Concomitant]
     Active Substance: CYCLOPENTOLATE
     Dosage: ONE DROP TWICE A DAY IN THE RIGHT EYE
     Route: 047
     Dates: start: 20230715, end: 20230724
  11. CYCLOPENTOLATE [Concomitant]
     Active Substance: CYCLOPENTOLATE
     Dosage: ONE DROP THREE TIMES A DAY IN THE RIGHT EYE
     Route: 047
     Dates: start: 20230724
  12. KRILL OIL [Concomitant]
     Active Substance: DIETARY SUPPLEMENT\KRILL OIL
     Route: 048
  13. COENZYME Q10 [Concomitant]
     Active Substance: DIETARY SUPPLEMENT\UBIDECARENONE
     Route: 048
  14. MOTRIN [Concomitant]
     Active Substance: IBUPROFEN
     Indication: Pain
     Dosage: TAKES 600 TO 800 MG AS NEEDED FOR PAIN
     Route: 048

REACTIONS (5)
  - Retinal occlusive vasculitis [Recovered/Resolved with Sequelae]
  - Blindness [Not Recovered/Not Resolved]
  - Retinal ischaemia [Unknown]
  - Headache [Recovered/Resolved]
  - Vision blurred [Recovered/Resolved]

NARRATIVE: CASE EVENT DATE: 20230714
